FAERS Safety Report 8805100 (Version 2)
Quarter: 2012Q4

REPORT INFORMATION
  Report Type: 
  Country: IT (occurrence: IT)
  Receive Date: 20120924
  Receipt Date: 20121008
  Transmission Date: 20130627
  Serious: Yes (Other)
  Sender: FDA-Public Use
  Company Number: IT-ELI_LILLY_AND_COMPANY-IT201209004297

PATIENT
  Sex: Male

DRUGS (7)
  1. CIALIS [Suspect]
     Indication: ERECTILE DYSFUNCTION
     Dosage: 5 mg, qd
     Route: 048
     Dates: start: 20120817, end: 20120827
  2. IRBESARTAN [Concomitant]
     Indication: HYPERTENSION
     Dosage: 300 mg, UNK
     Route: 048
  3. WARFARIN [Concomitant]
     Indication: ATRIAL FIBRILLATION
     Route: 048
  4. HYDROCHLOROTHIAZIDE [Concomitant]
     Indication: HYPERTENSION
     Dosage: 0.5 mg, UNK
     Route: 048
  5. ROSUVASTATIN [Concomitant]
     Indication: HYPERCHOLESTEROLAEMIA
     Dosage: 5 mg, UNK
     Route: 048
  6. METFORMIN [Concomitant]
     Indication: DIABETES MELLITUS
     Dosage: 500 mg, UNK
     Route: 048
  7. AMLODIPINE [Concomitant]
     Dosage: 5 mg, UNK
     Route: 048

REACTIONS (1)
  - International normalised ratio increased [Recovered/Resolved]
